FAERS Safety Report 8580916-5 (Version None)
Quarter: 2012Q3

REPORT INFORMATION
  Report Type: 
  Country: None (occurrence: None)
  Receive Date: 20120809
  Receipt Date: 20120730
  Transmission Date: 20120928
  Serious: Yes (Hospitalization)
  Sender: FDA-Public Use
  Company Number: IL-ACCORD-014313

PATIENT

DRUGS (5)
  1. INFLIXIMAB [Concomitant]
  2. PREDNISONE TAB [Suspect]
     Indication: IMMUNOSUPPRESSION
  3. AZATHIOPRINE SODIUM [Suspect]
     Indication: IMMUNOSUPPRESSION
  4. COLCHICIN [Concomitant]
  5. TACROLIMUS [Suspect]
     Indication: IMMUNOSUPPRESSION

REACTIONS (2)
  - HEPATIC ENZYME INCREASED [None]
  - GASTROENTERITIS CRYPTOSPORIDIAL [None]
